FAERS Safety Report 17344552 (Version 2)
Quarter: 2020Q1

REPORT INFORMATION
  Report Type: Spontaneous
  Country: DE (occurrence: DE)
  Receive Date: 20200129
  Receipt Date: 20200303
  Transmission Date: 20200409
  Serious: Yes (Other)
  Sender: FDA-Public Use
  Company Number: DE-US-PROVELL PHARMACEUTICALS LLC-E2B_90074257

PATIENT
  Sex: Female

DRUGS (2)
  1. EUTHYROX [Suspect]
     Active Substance: LEVOTHYROXINE SODIUM
     Dosage: NEW FORMULATION
     Dates: start: 201912, end: 2020
  2. EUTHYROX [Suspect]
     Active Substance: LEVOTHYROXINE SODIUM
     Indication: PRODUCT USED FOR UNKNOWN INDICATION
     Dosage: OLD FORMULATION
     Dates: start: 2017, end: 201912

REACTIONS (4)
  - Hypothyroidism [Recovered/Resolved]
  - Restlessness [Recovered/Resolved]
  - Insomnia [Recovered/Resolved]
  - Fatigue [Recovered/Resolved]
